FAERS Safety Report 6107672-4 (Version None)
Quarter: 2009Q1

REPORT INFORMATION
  Report Type: 
  Country: None (occurrence: None)
  Receive Date: 20090309
  Receipt Date: 20090304
  Transmission Date: 20090719
  Serious: Yes (Hospitalization)
  Sender: FDA-Public Use
  Company Number: US-ASTRAZENECA-2009UW05855

PATIENT
  Age: 76 Year
  Sex: Female
  Weight: 83.9 kg

DRUGS (4)
  1. FELODIPINE ER [Suspect]
     Indication: HYPERTENSION
     Route: 048
     Dates: end: 20050101
  2. FELODIPINE ER [Suspect]
     Route: 048
  3. HYZAAR [Concomitant]
     Indication: HYPERTENSION
  4. ARIMIDEX [Concomitant]
     Indication: BREAST CANCER

REACTIONS (2)
  - HOSPITALISATION [None]
  - RASH GENERALISED [None]
